FAERS Safety Report 17870064 (Version 3)
Quarter: 2020Q2

REPORT INFORMATION
  Report Type: Spontaneous
  Country: US (occurrence: US)
  Receive Date: 20200608
  Receipt Date: 20200625
  Transmission Date: 20200714
  Serious: No
  Sender: FDA-Public Use
  Company Number: US-SA-2020SA142963

PATIENT

DRUGS (1)
  1. DUPIXENT [Suspect]
     Active Substance: DUPILUMAB
     Dosage: 300 MG, OTHER
     Route: 058
     Dates: start: 2018

REACTIONS (3)
  - Injection site bruising [Unknown]
  - Needle issue [Unknown]
  - Injection site mass [Unknown]

NARRATIVE: CASE EVENT DATE: 2020
